FAERS Safety Report 6292818-8 (Version None)
Quarter: 2009Q3

REPORT INFORMATION
  Report Type: 
  Country: None (occurrence: None)
  Receive Date: 20090731
  Receipt Date: 20090721
  Transmission Date: 20100115
  Serious: Yes (Other)
  Sender: FDA-Public Use
  Company Number: BO-PFIZER INC-2009244052

PATIENT
  Age: 65 Year

DRUGS (4)
  1. LYRICA [Suspect]
     Indication: PAIN
     Dosage: 150 MG, 1X/DAY
     Route: 048
     Dates: start: 20090712, end: 20090712
  2. CALCIUM [Concomitant]
     Dosage: 1200 MG, 2X/DAY
     Route: 048
  3. ACETYLSALICYLIC ACID [Concomitant]
     Dosage: 81 MG, ALTERNATE DAY
     Route: 048
  4. LANSOPRAZOLE [Concomitant]
     Indication: HERNIA
     Dosage: 30 MG, 1X/DAY
     Route: 048

REACTIONS (7)
  - CONTUSION [None]
  - DIZZINESS [None]
  - EYE SWELLING [None]
  - SKIN DISCOLOURATION [None]
  - SPEECH DISORDER [None]
  - SWELLING FACE [None]
  - THROAT TIGHTNESS [None]
